FAERS Safety Report 5388826-1 (Version None)
Quarter: 2007Q3

REPORT INFORMATION
  Report Type: 
  Country: None (occurrence: None)
  Receive Date: 20070712
  Receipt Date: 20070702
  Transmission Date: 20080115
  Serious: Yes (Other)
  Sender: FDA-Public Use
  Company Number: 2007325702

PATIENT
  Age: 87 Year
  Sex: Female
  Weight: 43.0917 kg

DRUGS (9)
  1. SUDAFED S.A. [Suspect]
     Indication: RHINORRHOEA
     Dosage: 1 CAPSULE ONCE, ORAL
     Route: 048
  2. XALATAN [Concomitant]
  3. QUININE SULFATE [Concomitant]
  4. COSOPT [Concomitant]
  5. FERROUS SULFATE TAB [Concomitant]
  6. PRED FORTE [Concomitant]
  7. ALPHAGAN [Concomitant]
  8. ADVAIR DISKUS 100/50 [Concomitant]
  9. ARICEPT [Concomitant]

REACTIONS (3)
  - PRURITUS GENERALISED [None]
  - RASH MORBILLIFORM [None]
  - SELF-MEDICATION [None]
